FAERS Safety Report 20737057 (Version 5)
Quarter: 2023Q1

REPORT INFORMATION
  Report Type: Spontaneous
  Country: US (occurrence: US)
  Receive Date: 20220421
  Receipt Date: 20230103
  Transmission Date: 20230418
  Serious: Yes (Other)
  Sender: FDA-Public Use
  Company Number: US-PFIZER INC-202200420243

PATIENT
  Age: 60 Year
  Sex: Female

DRUGS (3)
  1. IBRANCE [Suspect]
     Active Substance: PALBOCICLIB
     Indication: Neoplasm malignant
     Dosage: UNK
  2. LETROZOLE [Suspect]
     Active Substance: LETROZOLE
     Indication: Neoplasm malignant
     Dosage: UNK
  3. BETAMETHASONE DIPROPIONATE\CALCIPOTRIENE MONOHYDRATE [Suspect]
     Active Substance: BETAMETHASONE DIPROPIONATE\CALCIPOTRIENE MONOHYDRATE
     Indication: Neoplasm malignant
     Dosage: UNK

REACTIONS (13)
  - Full blood count abnormal [Unknown]
  - White blood cell count abnormal [Unknown]
  - Fatigue [Not Recovered/Not Resolved]
  - Blood glucose abnormal [Unknown]
  - Stomatitis [Not Recovered/Not Resolved]
  - Mouth ulceration [Unknown]
  - Headache [Unknown]
  - Dizziness [Unknown]
  - Disturbance in attention [Unknown]
  - Hunger [Unknown]
  - Food craving [Unknown]
  - Weight increased [Unknown]
  - Depression [Unknown]
